FAERS Safety Report 6911110-9 (Version None)
Quarter: 2010Q3

REPORT INFORMATION
  Report Type: 
  Country: None (occurrence: None)
  Receive Date: 20100806
  Receipt Date: 20100803
  Transmission Date: 20110219
  Serious: Yes (Death)
  Sender: FDA-Public Use
  Company Number: DE-AMGEN-KDL421033

PATIENT
  Sex: Male

DRUGS (1)
  1. VECTIBIX [Suspect]
     Indication: PRODUCT USED FOR UNKNOWN INDICATION
     Dates: start: 20100615

REACTIONS (5)
  - DEATH [None]
  - ESCHAR [None]
  - PRURITUS [None]
  - SKIN HAEMORRHAGE [None]
  - SKIN REACTION [None]
